FAERS Safety Report 23000507 (Version 2)
Quarter: 2023Q4

REPORT INFORMATION
  Report Type: Report from Study
  Country: US (occurrence: US)
  Receive Date: 20230928
  Receipt Date: 20231014
  Transmission Date: 20240110
  Serious: No
  Sender: FDA-Public Use
  Company Number: US-002147023-NVSC2023US205987

PATIENT
  Age: 40 Year
  Sex: Male
  Weight: 86.18 kg

DRUGS (1)
  1. COSENTYX [Suspect]
     Active Substance: SECUKINUMAB
     Indication: Psoriasis
     Dosage: 300 MG, QMO
     Route: 058
     Dates: start: 2020

REACTIONS (6)
  - Arthralgia [Unknown]
  - Bursitis [Unknown]
  - Inflammation [Unknown]
  - Pain in extremity [Unknown]
  - Pain [Unknown]
  - Eczema [Unknown]

NARRATIVE: CASE EVENT DATE: 20230501
